FAERS Safety Report 24817750 (Version 2)
Quarter: 2025Q3

REPORT INFORMATION
  Report Type: Report from Study
  Country: US (occurrence: US)
  Receive Date: 20250108
  Receipt Date: 20250802
  Transmission Date: 20251020
  Serious: Yes (Death, Other)
  Sender: ALEXION PHARMACEUTICALS
  Company Number: US-ASTRAZENECA-202501USA001714US

PATIENT
  Sex: Female

DRUGS (19)
  1. BENRALIZUMAB [Suspect]
     Active Substance: BENRALIZUMAB
     Indication: Asthma
  2. LISINOPRIL [Suspect]
     Active Substance: LISINOPRIL
  3. OMEPRAZOLE [Suspect]
     Active Substance: OMEPRAZOLE
  4. BUSPIRONE [Concomitant]
     Active Substance: BUSPIRONE HYDROCHLORIDE
  5. LEVOCETIRIZINE HYDROCHLORIDE [Concomitant]
     Active Substance: LEVOCETIRIZINE HYDROCHLORIDE
  6. PRAMIPEXOLE [Concomitant]
     Active Substance: PRAMIPEXOLE
  7. SUMATRIPTAN [Concomitant]
     Active Substance: SUMATRIPTAN
  8. FLONASE ALLERGY RELIEF [Concomitant]
     Active Substance: FLUTICASONE PROPIONATE
  9. FLOVENT [Concomitant]
     Active Substance: FLUTICASONE PROPIONATE
  10. ALBUTEROL [Concomitant]
     Active Substance: ALBUTEROL
  11. ALBUTEROL [Concomitant]
     Active Substance: ALBUTEROL
  12. AMLODIPINE [Concomitant]
     Active Substance: AMLODIPINE BESYLATE
  13. LEVEMIR [Concomitant]
     Active Substance: INSULIN DETEMIR
  14. LYRICA [Concomitant]
     Active Substance: PREGABALIN
  15. MONTELUKAST [Concomitant]
     Active Substance: MONTELUKAST
  16. NOVOLOG [Concomitant]
     Active Substance: INSULIN ASPART
  17. TOPIRAMATE [Concomitant]
     Active Substance: TOPIRAMATE
  18. TRAMADOL HCL [Concomitant]
     Active Substance: TRAMADOL HYDROCHLORIDE
  19. TRELEGY ELLIPTA [Concomitant]
     Active Substance: FLUTICASONE FUROATE\UMECLIDINIUM BROMIDE\VILANTEROL TRIFENATATE

REACTIONS (1)
  - Death [Fatal]
